FAERS Safety Report 4371490-8 (Version None)
Quarter: 2004Q2

REPORT INFORMATION
  Report Type: 
  Country: None (occurrence: None)
  Receive Date: 20040602
  Receipt Date: 20040522
  Transmission Date: 20050107
  Serious: Yes (Hospitalization, Other)
  Sender: FDA-Public Use
  Company Number: 2004034916

PATIENT
  Age: 80 Year
  Sex: Male

DRUGS (7)
  1. LIPITOR [Suspect]
     Indication: ILL-DEFINED DISORDER
     Dosage: UNKNOWN
  2. PREDNISONE TAB [Concomitant]
  3. DONEPEZIL HCL [Concomitant]
  4. TRAZODONE HCL [Concomitant]
  5. ACETYLSALICYLIC ACID SRT [Concomitant]
  6. LEVOTHYROXINE SODIUM [Concomitant]
  7. FEXOFENADINE HYDROCHLORIDE [Concomitant]

REACTIONS (6)
  - DEMENTIA [None]
  - HYPOTHYROIDISM [None]
  - PARKINSON'S DISEASE [None]
  - POLYMYALGIA RHEUMATICA [None]
  - RHABDOMYOLYSIS [None]
  - RHINITIS ALLERGIC [None]
